FAERS Safety Report 8151477-X (Version None)
Quarter: 2012Q1

REPORT INFORMATION
  Report Type: 
  Country: None (occurrence: None)
  Receive Date: 20120220
  Receipt Date: 20120217
  Transmission Date: 20120608
  Serious: Yes (Hospitalization)
  Sender: FDA-Public Use
  Company Number: CA-ROCHE-1039485

PATIENT
  Sex: Male

DRUGS (4)
  1. DIOVAN [Concomitant]
  2. HERCEPTIN [Suspect]
     Indication: METASTATIC GASTRIC CANCER
     Route: 042
     Dates: start: 20111031
  3. CISPLATIN [Suspect]
     Indication: METASTATIC GASTRIC CANCER
  4. XELODA [Suspect]
     Indication: PRODUCT USED FOR UNKNOWN INDICATION
     Route: 048
     Dates: start: 20111101, end: 20120201

REACTIONS (2)
  - DEHYDRATION [None]
  - DIARRHOEA [None]
